FAERS Safety Report 5493727-4 (Version None)
Quarter: 2007Q4

REPORT INFORMATION
  Report Type: 
  Country: None (occurrence: None)
  Receive Date: 20071015
  Receipt Date: 20070617
  Transmission Date: 20080405
  Serious: No
  Sender: FDA-Public Use
  Company Number: 2007SP002267

PATIENT
  Age: 47 Year
  Sex: Female
  Weight: 73.9363 kg

DRUGS (4)
  1. LUNESTA [Suspect]
     Indication: INSOMNIA
     Dosage: 3 MG; HS; ORAL
     Route: 048
     Dates: start: 20060101, end: 20070601
  2. DEPAKOTE [Concomitant]
  3. CELEXA [Concomitant]
  4. RISPERDAL [Concomitant]

REACTIONS (1)
  - MUSCULAR WEAKNESS [None]
